FAERS Safety Report 5737287-9 (Version None)
Quarter: 2008Q2

REPORT INFORMATION
  Report Type: 
  Country: None (occurrence: None)
  Receive Date: 20080512
  Receipt Date: 20080512
  Transmission Date: 20081010
  Serious: Yes (Other)
  Sender: FDA-Public Use
  Company Number: None

PATIENT
  Sex: Female
  Weight: 60.782 kg

DRUGS (1)
  1. DIGITEK 125MCG ACTAVIS TOTOWA LLC [Suspect]
     Indication: ATRIAL FIBRILLATION
     Dosage: 1 TABLET DAILY PO
     Route: 048
     Dates: start: 20080406, end: 20080506

REACTIONS (6)
  - DIZZINESS [None]
  - FALL [None]
  - FRACTURED COCCYX [None]
  - HYPERVENTILATION [None]
  - LOSS OF CONSCIOUSNESS [None]
  - MUSCLE SPASMS [None]
